FAERS Safety Report 4693520-6 (Version None)
Quarter: 2005Q2

REPORT INFORMATION
  Report Type: 
  Country: None (occurrence: None)
  Receive Date: 20050615
  Receipt Date: 20050531
  Transmission Date: 20051028
  Serious: Yes (Death, Other)
  Sender: FDA-Public Use
  Company Number: USA050699381

PATIENT
  Age: 58 Year
  Sex: Female

DRUGS (2)
  1. CYMBALTA [Suspect]
     Dates: start: 20050501
  2. DARVOCET [Concomitant]

REACTIONS (2)
  - MENTAL DISORDER [None]
  - OVERDOSE [None]
